FAERS Safety Report 8281561-1 (Version None)
Quarter: 2012Q2

REPORT INFORMATION
  Report Type: 
  Country: None (occurrence: None)
  Receive Date: 20120413
  Receipt Date: 20120409
  Transmission Date: 20120825
  Serious: Yes (Life-Threatening)
  Sender: FDA-Public Use
  Company Number: TR-BAYER-2012-001319

PATIENT
  Age: 58 Year
  Sex: Male
  Weight: 65 kg

DRUGS (3)
  1. ETODOLAC [Concomitant]
     Dosage: UNK
  2. NEXAVAR [Suspect]
     Indication: GASTROINTESTINAL STROMAL TUMOUR
     Dosage: 2 TIMES FOR MORNING AND 2 TIMES FOR EVENING^ (QID)
     Route: 048
  3. TRAMADOL HCL [Concomitant]

REACTIONS (1)
  - RENAL FAILURE ACUTE [None]
